FAERS Safety Report 7037197-3 (Version None)
Quarter: 2010Q4

REPORT INFORMATION
  Report Type: 
  Country: None (occurrence: None)
  Receive Date: 20101011
  Receipt Date: 20100928
  Transmission Date: 20110411
  Serious: Yes (Hospitalization)
  Sender: FDA-Public Use
  Company Number: US-ELI_LILLY_AND_COMPANY-US201005002068

PATIENT
  Sex: Female

DRUGS (12)
  1. FORTEO [Suspect]
     Indication: OSTEOPOROSIS
     Dosage: 20 UG, DAILY (1/D)
  2. FORTEO [Suspect]
     Dosage: 20 UG, DAILY (1/D)
     Dates: start: 20100414, end: 20100907
  3. DOXYCYCLINE HYDROCHLORIDE [Concomitant]
     Dosage: 100 MG, UNK
  4. DIFLUCAN [Concomitant]
     Dosage: 100 MG, UNK
  5. PANTOPRAZOLE [Concomitant]
     Dosage: 40 MG, UNK
  6. METOPROLOL TARTRATE [Concomitant]
     Dosage: 15 MG, UNK
  7. LISINOPRIL [Concomitant]
  8. FUROSEMIDE [Concomitant]
     Dosage: 40 MG, UNK
  9. VITAMIN D [Concomitant]
  10. STOOL SOFTENER [Concomitant]
     Dosage: UNK, WEEKLY (1/W)
  11. DUONEB [Concomitant]
  12. FLOVENT [Concomitant]
     Dosage: UNK, 2/D

REACTIONS (14)
  - ANXIETY [None]
  - ARTHRALGIA [None]
  - BONE PAIN [None]
  - BRONCHITIS [None]
  - CARDIAC FAILURE CONGESTIVE [None]
  - DIZZINESS [None]
  - FEELING ABNORMAL [None]
  - HEART RATE INCREASED [None]
  - INJECTION SITE PAIN [None]
  - MUSCLE SPASMS [None]
  - NAUSEA [None]
  - PAIN [None]
  - PALPITATIONS [None]
  - PNEUMONIA [None]
